FAERS Safety Report 8926291 (Version 1)
Quarter: 2012Q4

REPORT INFORMATION
  Report Type: 
  Country: BR (occurrence: BR)
  Receive Date: 20121126
  Receipt Date: 20121126
  Transmission Date: 20130627
  Serious: Yes (Other)
  Sender: FDA-Public Use
  Company Number: PHHY2012BR108049

PATIENT
  Sex: Female

DRUGS (2)
  1. DIOVAN AMLO FIX [Suspect]
     Dosage: 1 DF (160/5mg), UNK
  2. DIOVAN AMLO FIX [Suspect]
     Dosage: 1 DF (800/5mg), UNK

REACTIONS (2)
  - Varicose vein [Unknown]
  - Blood pressure decreased [Unknown]
